FAERS Safety Report 26156708 (Version 1)
Quarter: 2025Q4

REPORT INFORMATION
  Report Type: Spontaneous
  Country: US (occurrence: None)
  Receive Date: 20251215
  Receipt Date: 20251215
  Transmission Date: 20260118
  Serious: No
  Sender: UCB
  Company Number: US-UCBSA-2025057789

PATIENT

DRUGS (7)
  1. BIMZELX [Suspect]
     Active Substance: BIMEKIZUMAB-BKZX
     Indication: Panic disorder
     Dosage: 320 MILLIGRAM, EV 2 WEEKS(QOW)
  2. BIMZELX [Suspect]
     Active Substance: BIMEKIZUMAB-BKZX
     Indication: Off label use
  3. COSENTYX [Concomitant]
     Active Substance: SECUKINUMAB
     Indication: Product used for unknown indication
  4. DICLOFENAC P [Concomitant]
     Indication: Product used for unknown indication
  5. IRON [Concomitant]
     Active Substance: IRON
     Indication: Product used for unknown indication
  6. LORAZEPAM [Concomitant]
     Active Substance: LORAZEPAM
     Indication: Product used for unknown indication
     Dosage: UNK
  7. MIRTAZAPINE [Concomitant]
     Active Substance: MIRTAZAPINE
     Indication: Product used for unknown indication

REACTIONS (2)
  - Product dispensing error [Unknown]
  - Off label use [Unknown]
